FAERS Safety Report 5706564-X (Version None)
Quarter: 2008Q2

REPORT INFORMATION
  Report Type: 
  Country: None (occurrence: None)
  Receive Date: 20080415
  Receipt Date: 20080402
  Transmission Date: 20081010
  Serious: Yes (Death, Other)
  Sender: FDA-Public Use
  Company Number: US-ELI_LILLY_AND_COMPANY-US200801006512

PATIENT
  Age: 65 Year
  Sex: Female

DRUGS (2)
  1. XIGRIS [Suspect]
     Indication: SEPSIS
     Dosage: UNK, UNK
     Dates: start: 20080109, end: 20080113
  2. CHEMOTHERAPEUTICS NOS [Concomitant]

REACTIONS (2)
  - DEATH [None]
  - HAEMORRHAGE [None]
